FAERS Safety Report 9207667 (Version 9)
Quarter: 2014Q1

REPORT INFORMATION
  Report Type: Report from Study
  Country: FR (occurrence: FR)
  Receive Date: 20130403
  Receipt Date: 20140116
  Transmission Date: 20141002
  Serious: Yes (Hospitalization)
  Sender: FDA-Public Use
  Company Number: FR-BAYER-2013-030107

PATIENT
  Age: 72 Year
  Sex: Female
  Weight: 58 kg

DRUGS (17)
  1. SORAFENIB (RAF KINASE INHIBITOR) [Suspect]
     Indication: HEPATOCELLULAR CARCINOMA
     Dosage: CYCLE 1, 400 MG, BID
     Route: 048
     Dates: start: 20091223, end: 20100120
  2. SORAFENIB (RAF KINASE INHIBITOR) [Suspect]
     Indication: HEPATOCELLULAR CARCINOMA
     Dosage: CYCLE 1, 400 MG, QD
     Route: 048
     Dates: start: 20100121, end: 20100221
  3. SORAFENIB (RAF KINASE INHIBITOR) [Suspect]
     Indication: HEPATOCELLULAR CARCINOMA
     Dosage: CYCLE 3, 400 MG, QD
     Route: 048
     Dates: start: 20100611, end: 20100901
  4. SORAFENIB (RAF KINASE INHIBITOR) [Suspect]
     Indication: HEPATOCELLULAR CARCINOMA
     Dosage: CYCLE 4, 400 MG, QD
     Route: 048
     Dates: start: 20100902, end: 20101124
  5. SORAFENIB (RAF KINASE INHIBITOR) [Suspect]
     Indication: HEPATOCELLULAR CARCINOMA
     Dosage: CYCLE 5, 400 MG, QD
     Route: 048
     Dates: start: 20101125, end: 20110216
  6. SORAFENIB (RAF KINASE INHIBITOR) [Suspect]
     Indication: HEPATOCELLULAR CARCINOMA
     Dosage: CYCLE 6, 400 MG, QD
     Route: 048
     Dates: start: 20110217, end: 20110525
  7. SORAFENIB (RAF KINASE INHIBITOR) [Suspect]
     Indication: HEPATOCELLULAR CARCINOMA
     Dosage: CYCLE 7, 400 MG, QD
     Route: 048
     Dates: start: 20110526, end: 20110831
  8. SORAFENIB (RAF KINASE INHIBITOR) [Suspect]
     Indication: HEPATOCELLULAR CARCINOMA
     Dosage: CYCLE 8, 400 MG, QD
     Route: 048
     Dates: start: 20110901, end: 20111130
  9. SORAFENIB (RAF KINASE INHIBITOR) [Suspect]
     Indication: HEPATOCELLULAR CARCINOMA
     Dosage: CYCLE 9, 400 MG, QD
     Route: 048
     Dates: start: 20111201, end: 20120229
  10. SORAFENIB (RAF KINASE INHIBITOR) [Suspect]
     Indication: HEPATOCELLULAR CARCINOMA
     Dosage: CYCLE 10, 400 MG, QD
     Route: 048
     Dates: start: 20120301, end: 20120524
  11. SORAFENIB (RAF KINASE INHIBITOR) [Suspect]
     Indication: HEPATOCELLULAR CARCINOMA
     Dosage: CYCLE 11, 400 MG, QD
     Route: 048
     Dates: start: 20120525, end: 20120829
  12. SORAFENIB (RAF KINASE INHIBITOR) [Suspect]
     Indication: HEPATOCELLULAR CARCINOMA
     Dosage: CYCLE 12, 400 MG, QOD
     Route: 048
     Dates: start: 20120830, end: 20121114
  13. SORAFENIB (RAF KINASE INHIBITOR) [Suspect]
     Indication: HEPATOCELLULAR CARCINOMA
     Dosage: CYCLE 13, 400 MG, QOD
     Route: 048
     Dates: start: 20121115, end: 20130130
  14. SORAFENIB (RAF KINASE INHIBITOR) [Suspect]
     Indication: HEPATOCELLULAR CARCINOMA
     Dosage: CYCLE 14, 400 MG, QOD
     Route: 048
     Dates: start: 20130131, end: 20130228
  15. PRAVASTATINE [Concomitant]
     Indication: HYPERCHOLESTEROLAEMIA
     Dosage: 20 MG DAILY
     Route: 048
     Dates: start: 2004
  16. CALTRATE [CALCIUM CARBONATE] [Concomitant]
     Indication: OSTEOPOROSIS
     Dosage: 1 G DAILY
     Route: 048
     Dates: start: 2003
  17. LEVOTHYROX [Concomitant]
     Indication: HYPOTHYROIDISM
     Dosage: DAILY DOSE 75 ?G
     Route: 048
     Dates: start: 20120525

REACTIONS (2)
  - Guillain-Barre syndrome [Not Recovered/Not Resolved]
  - Headache [Recovered/Resolved]
